FAERS Safety Report 19570235 (Version 3)
Quarter: 2021Q3

REPORT INFORMATION
  Report Type: Spontaneous
  Country: US (occurrence: US)
  Receive Date: 20210716
  Receipt Date: 20210914
  Transmission Date: 20211014
  Serious: No
  Sender: FDA-Public Use
  Company Number: US-GLAXOSMITHKLINE-US2021150256

PATIENT
  Sex: Female

DRUGS (2)
  1. ZEJULA [Suspect]
     Active Substance: NIRAPARIB
     Indication: OVARIAN CANCER
     Dosage: 300 MG, QD
     Route: 048
     Dates: start: 20210617, end: 20210705
  2. ZEJULA [Suspect]
     Active Substance: NIRAPARIB
     Dosage: 200 MG, QD

REACTIONS (7)
  - White blood cell count decreased [Unknown]
  - Full blood count decreased [Recovering/Resolving]
  - Ear infection [Unknown]
  - Heart rate increased [Unknown]
  - Blood glucose increased [Unknown]
  - Oral discomfort [Unknown]
  - Platelet count decreased [Not Recovered/Not Resolved]
